FAERS Safety Report 17798059 (Version 1)
Quarter: 2020Q2

REPORT INFORMATION
  Report Type: Spontaneous
  Country: JP (occurrence: JP)
  Receive Date: 20200518
  Receipt Date: 20200518
  Transmission Date: 20200714
  Serious: Yes (Other)
  Sender: FDA-Public Use
  Company Number: JP-STRIDES ARCOLAB LIMITED-2020SP005728

PATIENT
  Age: 61 Year
  Sex: Male

DRUGS (1)
  1. VANCOMYCIN [Suspect]
     Active Substance: VANCOMYCIN
     Indication: DEVICE RELATED SEPSIS
     Dosage: 1 GRAM PER DAY
     Route: 065

REACTIONS (6)
  - Rash vesicular [Recovered/Resolved]
  - Linear IgA disease [Recovered/Resolved]
  - Skin erosion [Recovered/Resolved]
  - Scab [Recovered/Resolved]
  - Blister [Recovered/Resolved]
  - Papule [Recovered/Resolved]
